FAERS Safety Report 7411889-6 (Version None)
Quarter: 2011Q2

REPORT INFORMATION
  Report Type: 
  Country: None (occurrence: None)
  Receive Date: 20110405
  Receipt Date: 20110323
  Transmission Date: 20111010
  Serious: Yes (Hospitalization)
  Sender: FDA-Public Use
  Company Number: 2011MA003095

PATIENT
  Age: 62 Year
  Sex: Male

DRUGS (10)
  1. LERGIGAN [Concomitant]
  2. SIMVASTATIN [Concomitant]
  3. METOPROLOL [Concomitant]
  4. CIRCADIN [Concomitant]
  5. LYRICA [Suspect]
     Indication: DEPRESSION
     Dosage: 225 MG; QD; PO
     Route: 048
  6. PROPAVAN (PROPIOMAZINE MALEATE) [Suspect]
     Dosage: 50 MG; QD; PO
     Route: 048
  7. CIPRALEX /DEN/ [Concomitant]
  8. WARAN [Concomitant]
  9. DIAZEPAM [Suspect]
     Dosage: 15 MG; QD; PO
     Route: 048
  10. ZOPICLONE (ZOPICLONE) [Suspect]
     Dosage: 15 MG; QD;
     Dates: end: 20110207

REACTIONS (7)
  - FATIGUE [None]
  - FALL [None]
  - DYSARTHRIA [None]
  - BALANCE DISORDER [None]
  - HEAD INJURY [None]
  - NO THERAPEUTIC RESPONSE [None]
  - ASTHENIA [None]
